FAERS Safety Report 7737336-2 (Version None)
Quarter: 2011Q3

REPORT INFORMATION
  Report Type: 
  Country: None (occurrence: None)
  Receive Date: 20110908
  Receipt Date: 20110830
  Transmission Date: 20111222
  Serious: Yes (Other)
  Sender: FDA-Public Use
  Company Number: US-JNJFOC-20110900209

PATIENT
  Sex: Female
  Weight: 88 kg

DRUGS (2)
  1. REMICADE [Suspect]
     Indication: RHEUMATOID ARTHRITIS
     Route: 042
     Dates: start: 20030101
  2. REMICADE [Suspect]
     Route: 042

REACTIONS (3)
  - WEIGHT DECREASED [None]
  - LYMPHOMA [None]
  - DRUG INEFFECTIVE [None]
